FAERS Safety Report 7287430-8 (Version None)
Quarter: 2011Q1

REPORT INFORMATION
  Report Type: 
  Country: None (occurrence: None)
  Receive Date: 20110211
  Receipt Date: 20110208
  Transmission Date: 20110831
  Serious: Yes (Other)
  Sender: FDA-Public Use
  Company Number: US-TYCO HEALTHCARE/MALLINCKRODT-T201100284

PATIENT
  Age: 79 Year
  Sex: Male

DRUGS (6)
  1. LYRICA [Suspect]
     Dosage: UNK
  2. ACETAMINOPHEN AND HYDROCODONE BITARTRATE [Suspect]
     Dosage: UNK
  3. GABAPENTIN [Suspect]
     Dosage: UNK
  4. TETRACYCLINE [Suspect]
     Dosage: UNK
  5. MUCOMYST [Suspect]
     Dosage: UNK
  6. LEVAQUIN [Suspect]
     Dosage: UNK

REACTIONS (1)
  - HALLUCINATION [None]
